FAERS Safety Report 21572905 (Version 2)
Quarter: 2022Q4

REPORT INFORMATION
  Report Type: Spontaneous
  Country: IT (occurrence: IT)
  Receive Date: 20221109
  Receipt Date: 20221115
  Transmission Date: 20230113
  Serious: Yes (Other)
  Sender: FDA-Public Use
  Company Number: None

PATIENT
  Age: 62 Year
  Sex: Female
  Weight: 53 kg

DRUGS (3)
  1. IBRANCE [Suspect]
     Active Substance: PALBOCICLIB
     Indication: Breast cancer stage IV
     Dosage: 125 MG, 1X/DAY
     Route: 048
     Dates: start: 20220404, end: 20220607
  2. IBRANCE [Suspect]
     Active Substance: PALBOCICLIB
     Dosage: 100 MG, 1X/DAY
     Route: 048
     Dates: start: 20220712, end: 20220920
  3. FULVESTRANT [Concomitant]
     Active Substance: FULVESTRANT
     Indication: Breast cancer stage IV
     Dosage: 250 MG, 2X/DAY
     Route: 030

REACTIONS (2)
  - Neutropenia [Recovering/Resolving]
  - Electrocardiogram ST segment depression [Recovering/Resolving]

NARRATIVE: CASE EVENT DATE: 20220712
